FAERS Safety Report 22031265 (Version 5)
Quarter: 2024Q4

REPORT INFORMATION
  Report Type: Report from Study
  Country: NL (occurrence: NL)
  Receive Date: 20230223
  Receipt Date: 20241127
  Transmission Date: 20250115
  Serious: Yes (Hospitalization)
  Sender: ROCHE
  Company Number: NL-ROCHE-3291083

PATIENT
  Age: 58 Year
  Sex: Female
  Weight: 67.0 kg

DRUGS (24)
  1. OCRELIZUMAB [Suspect]
     Active Substance: OCRELIZUMAB
     Indication: Primary progressive multiple sclerosis
     Dosage: ON 31/MAY/2022 THE MOST RECENT DOSE 600MG OF STUDY DRUG PRIOR TO AE AND SAE, TOTAL VOLUME PRIOR AE A
     Route: 042
     Dates: start: 20181212, end: 20181212
  2. OCRELIZUMAB [Suspect]
     Active Substance: OCRELIZUMAB
     Dosage: SUBSEQUENT DOSE RECEIVED ON 11/DEC/2019, 14/MAY/2020, 20/NOV/2020, 14/MAY/2021, 19/NOV/2021, 31/MAY/
     Route: 042
     Dates: start: 20190611, end: 20190611
  3. OCRELIZUMAB [Suspect]
     Active Substance: OCRELIZUMAB
     Route: 042
  4. OCRELIZUMAB [Suspect]
     Active Substance: OCRELIZUMAB
     Route: 042
  5. OCRELIZUMAB [Suspect]
     Active Substance: OCRELIZUMAB
     Route: 042
  6. DIAZEPAM [Concomitant]
     Active Substance: DIAZEPAM
     Route: 048
     Dates: start: 20210603, end: 20230111
  7. DALFAMPRIDINE [Concomitant]
     Active Substance: DALFAMPRIDINE
     Route: 048
     Dates: start: 20190215
  8. DALFAMPRIDINE [Concomitant]
     Active Substance: DALFAMPRIDINE
     Route: 048
     Dates: start: 20190215
  9. CHOLECALCIFEROL [Concomitant]
     Active Substance: CHOLECALCIFEROL
     Indication: Prophylaxis
     Dosage: 800 OTHER: DOSE
     Route: 048
     Dates: start: 20181227
  10. ACETAMINOPHEN [Concomitant]
     Active Substance: ACETAMINOPHEN
     Dosage: SUBSEQUENT DOSE RECEIVED ON 04/MAR/2022? FREQUENCY TEXT:PRN
     Route: 048
     Dates: start: 20210426
  11. PREGABALIN [Concomitant]
     Active Substance: PREGABALIN
     Route: 048
     Dates: start: 20210603
  12. NADROPARIN CALCIUM [Concomitant]
     Active Substance: NADROPARIN CALCIUM
     Route: 058
     Dates: start: 20220304
  13. MIRABEGRON [Concomitant]
     Active Substance: MIRABEGRON
     Dosage: YES
     Route: 048
     Dates: start: 20220817
  14. TOVIAZ [Concomitant]
     Active Substance: FESOTERODINE FUMARATE
     Route: 048
     Dates: start: 20221123
  15. FUROSEMIDE [Concomitant]
     Active Substance: FUROSEMIDE
     Indication: Prophylaxis
     Route: 048
     Dates: start: 20220305
  16. FOSFOMYCIN [Concomitant]
     Active Substance: FOSFOMYCIN
     Route: 048
     Dates: start: 20220729
  17. SULFAMETHOXAZOLE\TRIMETHOPRIM [Concomitant]
     Active Substance: SULFAMETHOXAZOLE\TRIMETHOPRIM
     Route: 048
     Dates: start: 20220803
  18. IBUPROFEN [Concomitant]
     Active Substance: IBUPROFEN
     Route: 048
     Dates: start: 20221201
  19. MORPHINE [Concomitant]
     Active Substance: MORPHINE
     Route: 048
     Dates: start: 20221201
  20. NITROFURANTOIN [Concomitant]
     Active Substance: NITROFURANTOIN
     Route: 048
     Dates: start: 20230117
  21. DICLOFENAC [Concomitant]
     Active Substance: DICLOFENAC
     Route: 048
     Dates: start: 20230117
  22. ACETAMINOPHEN [Concomitant]
     Active Substance: ACETAMINOPHEN
     Dosage: FREQUENCY TEXT:PRN
     Route: 048
     Dates: start: 20221201, end: 20230123
  23. ACETAMINOPHEN [Concomitant]
     Active Substance: ACETAMINOPHEN
     Dosage: FREQUENCY TEXT:PRN
     Route: 048
     Dates: start: 20230123
  24. GRANISETRON [Concomitant]
     Active Substance: GRANISETRON
     Dosage: FREQUENCY TEXT:PRN
     Route: 042
     Dates: start: 20220305

REACTIONS (1)
  - Pyelonephritis [Recovered/Resolved]

NARRATIVE: CASE EVENT DATE: 20230123
